FAERS Safety Report 19821760 (Version 9)
Quarter: 2023Q2

REPORT INFORMATION
  Report Type: Spontaneous
  Country: CA (occurrence: CA)
  Receive Date: 20210913
  Receipt Date: 20230425
  Transmission Date: 20230721
  Serious: Yes (Death, Other)
  Sender: FDA-Public Use
  Company Number: CA-002147023-NVSC2021CA203905

PATIENT

DRUGS (137)
  1. DICLOFENAC [Suspect]
     Active Substance: DICLOFENAC
     Indication: Foetal exposure during pregnancy
     Dosage: UNK
     Route: 064
  2. DICLOFENAC SODIUM [Suspect]
     Active Substance: DICLOFENAC SODIUM
     Indication: Foetal exposure during pregnancy
     Dosage: UNK
     Route: 064
  3. DICLOFENAC SODIUM [Suspect]
     Active Substance: DICLOFENAC SODIUM
     Dosage: UNK (MATERNAL EXPOSURE DURING PREGNANCY: 50 MG, QD)
     Route: 064
  4. DICLOFENAC SODIUM [Suspect]
     Active Substance: DICLOFENAC SODIUM
     Dosage: UNK
     Route: 064
  5. DICLOFENAC SODIUM [Suspect]
     Active Substance: DICLOFENAC SODIUM
     Dosage: UNK
     Route: 064
  6. HYDROCORTISONE [Suspect]
     Active Substance: HYDROCORTISONE
     Indication: Foetal exposure during pregnancy
     Dosage: UNK
     Route: 064
  7. HYDROCORTISONE [Suspect]
     Active Substance: HYDROCORTISONE
     Dosage: UNK
     Route: 064
  8. DIPHENHYDRAMINE HYDROCHLORIDE [Suspect]
     Active Substance: DIPHENHYDRAMINE HYDROCHLORIDE
     Indication: Foetal exposure during pregnancy
     Dosage: UNK
     Route: 064
  9. DIPHENHYDRAMINE HYDROCHLORIDE [Suspect]
     Active Substance: DIPHENHYDRAMINE HYDROCHLORIDE
     Dosage: UNK
     Route: 064
  10. CETIRIZINE HYDROCHLORIDE [Suspect]
     Active Substance: CETIRIZINE HYDROCHLORIDE
     Indication: Foetal exposure during pregnancy
     Dosage: UNK (MATERNAL DOSE :10 MG)
     Route: 064
  11. CETIRIZINE HYDROCHLORIDE [Suspect]
     Active Substance: CETIRIZINE HYDROCHLORIDE
     Dosage: UNK
     Route: 064
  12. PSEUDOEPHEDRINE HYDROCHLORIDE [Suspect]
     Active Substance: PSEUDOEPHEDRINE HYDROCHLORIDE
     Indication: Foetal exposure during pregnancy
     Dosage: UNK
     Route: 064
  13. ERELZI [Suspect]
     Active Substance: ETANERCEPT-SZZS
     Indication: Foetal exposure during pregnancy
     Dosage: UNK
     Route: 064
  14. ADALIMUMAB [Suspect]
     Active Substance: ADALIMUMAB
     Indication: Foetal exposure during pregnancy
     Dosage: UNK (SOLUTION SUBCUTANEOUS)
     Route: 064
  15. FOLIC ACID [Suspect]
     Active Substance: FOLIC ACID
     Indication: Foetal exposure during pregnancy
     Dosage: UNK (MATERNAL EXPOSURE DURING PREGNANCY: 1 MG)
     Route: 064
  16. FOLIC ACID [Suspect]
     Active Substance: FOLIC ACID
     Dosage: UNK  (MATERNAL EXPOSURE DURING PREGNANCY: 0.5 MG)
     Route: 064
  17. FOLIC ACID [Suspect]
     Active Substance: FOLIC ACID
     Dosage: UNK  (MATERNAL EXPOSURE DURING PREGNANCY: 5 MG)
     Route: 064
  18. FOLIC ACID [Suspect]
     Active Substance: FOLIC ACID
     Dosage: UNK  (MATERNAL EXPOSURE DURING PREGNANCY: 25 MG)
     Route: 064
  19. FOLIC ACID [Suspect]
     Active Substance: FOLIC ACID
     Dosage: UNK (MATERNAL EXPOSURE DURING PREGNANCY: 50 MG)
     Route: 064
  20. FOLIC ACID [Suspect]
     Active Substance: FOLIC ACID
     Dosage: UNK
     Route: 064
  21. FOLIC ACID [Suspect]
     Active Substance: FOLIC ACID
     Dosage: UNK
     Route: 064
  22. FOLIC ACID [Suspect]
     Active Substance: FOLIC ACID
     Dosage: UNK
     Route: 064
  23. FOLIC ACID [Suspect]
     Active Substance: FOLIC ACID
     Dosage: UNK
     Route: 064
  24. FOLIC ACID [Suspect]
     Active Substance: FOLIC ACID
     Dosage: UNK
     Route: 064
  25. FOLIC ACID [Suspect]
     Active Substance: FOLIC ACID
     Dosage: UNK
     Route: 064
  26. LEFLUNOMIDE [Suspect]
     Active Substance: LEFLUNOMIDE
     Indication: Foetal exposure during pregnancy
     Dosage: UNK
     Route: 064
  27. LEFLUNOMIDE [Suspect]
     Active Substance: LEFLUNOMIDE
     Dosage: UNK (MATERNAL EXPOSURE DURING PREGNANCY: 20 MG)
     Route: 064
  28. LEFLUNOMIDE [Suspect]
     Active Substance: LEFLUNOMIDE
     Dosage: UNK (MATERNAL EXPOSURE DURING PREGNANCY: 20 MG)
     Route: 064
  29. LEFLUNOMIDE [Suspect]
     Active Substance: LEFLUNOMIDE
     Dosage: UNK
     Route: 064
  30. LEFLUNOMIDE [Suspect]
     Active Substance: LEFLUNOMIDE
     Dosage: UNK
     Route: 064
  31. METHOTREXATE [Suspect]
     Active Substance: METHOTREXATE
     Indication: Foetal exposure during pregnancy
     Dosage: UNK ( MATERNAL EXPOSURE DURING PREGNANCY: 20 MG)
     Route: 064
  32. METHOTREXATE [Suspect]
     Active Substance: METHOTREXATE
     Dosage: UNK (MATERNAL EXPOSURE DURING PREGNANCY: 25 MG)
     Route: 064
  33. METHOTREXATE [Suspect]
     Active Substance: METHOTREXATE
     Dosage: UNK (MATERNAL EXPOSURE DURING PREGNANCY: 25 MG, QW)
     Route: 064
  34. METHOTREXATE [Suspect]
     Active Substance: METHOTREXATE
     Dosage: UNK (MATERNAL EXPOSURE DURING PREGNANCY: 20 MG, QD)
     Route: 064
  35. METHOTREXATE [Suspect]
     Active Substance: METHOTREXATE
     Dosage: UNK (MATERNAL EXPOSURE DURING PREGNANCY: 20 MG, QW)
     Route: 064
  36. METHOTREXATE [Suspect]
     Active Substance: METHOTREXATE
     Dosage: UNK
     Route: 064
  37. METHOTREXATE [Suspect]
     Active Substance: METHOTREXATE
     Dosage: UNK
     Route: 064
  38. METHOTREXATE [Suspect]
     Active Substance: METHOTREXATE
     Dosage: UNK
     Route: 064
  39. METHOTREXATE [Suspect]
     Active Substance: METHOTREXATE
     Dosage: UNK
     Route: 064
  40. METHOTREXATE [Suspect]
     Active Substance: METHOTREXATE
     Dosage: UNK
     Route: 064
  41. ACETAMINOPHEN [Suspect]
     Active Substance: ACETAMINOPHEN
     Indication: Foetal exposure during pregnancy
     Dosage: UNK
     Route: 064
  42. ACETAMINOPHEN [Suspect]
     Active Substance: ACETAMINOPHEN
     Dosage: UNK
     Route: 064
  43. ACETAMINOPHEN [Suspect]
     Active Substance: ACETAMINOPHEN
     Dosage: UNK
     Route: 064
  44. ACTEMRA [Suspect]
     Active Substance: TOCILIZUMAB
     Indication: Foetal exposure during pregnancy
     Dosage: UNK
     Route: 064
  45. PREDNISONE [Suspect]
     Active Substance: PREDNISONE
     Indication: Foetal exposure during pregnancy
     Dosage: UNK
     Route: 064
  46. ARAVA [Suspect]
     Active Substance: LEFLUNOMIDE
     Indication: Foetal exposure during pregnancy
     Dosage: UNK (MATERNAL EXPOSURE DURING PREGNANCY: 20 MG)
     Route: 064
  47. ARAVA [Suspect]
     Active Substance: LEFLUNOMIDE
     Dosage: UNK
     Route: 064
  48. ARAVA [Suspect]
     Active Substance: LEFLUNOMIDE
     Dosage: UNK
     Route: 064
  49. CETIRIZINE HYDROCHLORIDE\PSEUDOEPHEDRINE HYDROCHLORIDE [Suspect]
     Active Substance: CETIRIZINE HYDROCHLORIDE\PSEUDOEPHEDRINE HYDROCHLORIDE
     Indication: Foetal exposure during pregnancy
     Dosage: UNK
     Route: 064
  50. CETIRIZINE HYDROCHLORIDE\PSEUDOEPHEDRINE HYDROCHLORIDE [Suspect]
     Active Substance: CETIRIZINE HYDROCHLORIDE\PSEUDOEPHEDRINE HYDROCHLORIDE
     Dosage: UNK
     Route: 064
  51. CIMZIA [Suspect]
     Active Substance: CERTOLIZUMAB PEGOL
     Indication: Foetal exposure during pregnancy
     Dosage: UNK
     Route: 064
  52. CIMZIA [Suspect]
     Active Substance: CERTOLIZUMAB PEGOL
     Dosage: UNK (MATERNAL EXPOSURE DURING PREGNANCY: 400 MG)
     Route: 064
  53. CIMZIA [Suspect]
     Active Substance: CERTOLIZUMAB PEGOL
     Dosage: UNK
     Route: 064
  54. CORTISONE ACETATE [Suspect]
     Active Substance: CORTISONE ACETATE
     Indication: Foetal exposure during pregnancy
     Dosage: UNK (MATERNAL EXPOSURE DURING PREGNANCY: 25 MG)
     Route: 064
  55. CORTISONE ACETATE [Suspect]
     Active Substance: CORTISONE ACETATE
     Dosage: UNK
     Route: 064
  56. CORTISONE ACETATE [Suspect]
     Active Substance: CORTISONE ACETATE
     Dosage: UNK
     Route: 064
  57. CORTISONE ACETATE [Suspect]
     Active Substance: CORTISONE ACETATE
     Dosage: UNK (MATERNAL DOSE: 25 MG)
     Route: 064
  58. CORTISONE ACETATE [Suspect]
     Active Substance: CORTISONE ACETATE
     Indication: Foetal exposure during pregnancy
     Dosage: UNK (MATERNAL EXPOSURE DURING PREGNANCY: 25 MG)
     Route: 064
  59. CORTISONE ACETATE [Suspect]
     Active Substance: CORTISONE ACETATE
     Dosage: UNK (MATERNAL EXPOSURE DURING PREGNANCY: 25 MG)
     Route: 064
  60. CORTISONE ACETATE [Suspect]
     Active Substance: CORTISONE ACETATE
     Dosage: UNK (MATERNAL EXPOSURE DURING PREGNANCY: 25 MG)
     Route: 064
  61. CORTISONE ACETATE [Suspect]
     Active Substance: CORTISONE ACETATE
     Dosage: UNK
     Route: 064
  62. CORTISONE ACETATE [Suspect]
     Active Substance: CORTISONE ACETATE
     Dosage: UNK
     Route: 064
  63. CORTISONE ACETATE [Suspect]
     Active Substance: CORTISONE ACETATE
     Dosage: UNK
     Route: 064
  64. CORTISONE ACETATE [Suspect]
     Active Substance: CORTISONE ACETATE
     Dosage: UNK
     Route: 064
  65. CORTISONE ACETATE [Suspect]
     Active Substance: CORTISONE ACETATE
     Dosage: UNK
     Route: 064
  66. DESOXIMETASONE [Suspect]
     Active Substance: DESOXIMETASONE
     Indication: Foetal exposure during pregnancy
     Dosage: UNK
     Route: 064
  67. DESOXIMETASONE [Suspect]
     Active Substance: DESOXIMETASONE
     Dosage: UNK
     Route: 064
  68. DESOXIMETASONE [Suspect]
     Active Substance: DESOXIMETASONE
     Dosage: UNK
     Route: 064
  69. ENBREL [Suspect]
     Active Substance: ETANERCEPT
     Indication: Foetal exposure during pregnancy
     Dosage: UNK (MATERNAL EXPOSURE DURING PREGNANCY: 50 MG, QW )
     Route: 064
  70. ENBREL [Suspect]
     Active Substance: ETANERCEPT
     Dosage: UNK (MATERNAL EXPOSURE DURING PREGNANCY: 50 MG)
     Route: 064
  71. ENBREL [Suspect]
     Active Substance: ETANERCEPT
     Dosage: UNK
     Route: 064
  72. ENBREL [Suspect]
     Active Substance: ETANERCEPT
     Dosage: UNK
     Route: 064
  73. FOSAMAX [Suspect]
     Active Substance: ALENDRONATE SODIUM
     Indication: Foetal exposure during pregnancy
     Dosage: UNK
     Route: 064
  74. FOSAMAX [Suspect]
     Active Substance: ALENDRONATE SODIUM
     Dosage: UNK
     Route: 064
  75. FOSAMAX [Suspect]
     Active Substance: ALENDRONATE SODIUM
     Dosage: UNK
     Route: 064
  76. FOSAMAX [Suspect]
     Active Substance: ALENDRONATE SODIUM
     Dosage: UNK
     Route: 064
  77. GOLIMUMAB [Suspect]
     Active Substance: GOLIMUMAB
     Indication: Foetal exposure during pregnancy
     Dosage: UNK
     Route: 064
  78. HUMIRA [Suspect]
     Active Substance: ADALIMUMAB
     Indication: Foetal exposure during pregnancy
     Dosage: UNK (MATERNAL EXPOSURE DURING PREGNANCY: 40 MG (SOLUTION SUBCUTANEOUS))
     Route: 064
  79. HUMIRA [Suspect]
     Active Substance: ADALIMUMAB
     Dosage: UNK (MATERNAL EXPOSURE DURING PREGNANCY: 4 MG)
     Route: 064
  80. HUMIRA [Suspect]
     Active Substance: ADALIMUMAB
     Dosage: UNK (MATERNAL EXPOSURE DURING PREGNANCY: 400 MG,QW (SUBCUTANEOUS))
     Route: 064
  81. HUMIRA [Suspect]
     Active Substance: ADALIMUMAB
     Dosage: UNK
     Route: 064
  82. HYDROXYCHLOROQUINE [Suspect]
     Active Substance: HYDROXYCHLOROQUINE
     Indication: Foetal exposure during pregnancy
     Dosage: UNK
     Route: 064
  83. HYDROXYCHLOROQUINE [Suspect]
     Active Substance: HYDROXYCHLOROQUINE
     Dosage: UNK (MATERNAL EXPOSURE DURING PREGNANCY: 400 MG)
     Route: 064
  84. HYDROXYCHLOROQUINE SULFATE [Suspect]
     Active Substance: HYDROXYCHLOROQUINE SULFATE
     Indication: Foetal exposure during pregnancy
     Dosage: UNK
     Route: 064
  85. HYDROXYCHLOROQUINE SULFATE [Suspect]
     Active Substance: HYDROXYCHLOROQUINE SULFATE
     Dosage: UNK (MATERNAL EXPOSURE DURING PREGNANCY: 400 MG)
     Route: 064
  86. HYDROXYCHLOROQUINE SULFATE [Suspect]
     Active Substance: HYDROXYCHLOROQUINE SULFATE
     Dosage: UNK
     Route: 064
  87. ORENCIA [Suspect]
     Active Substance: ABATACEPT
     Indication: Foetal exposure during pregnancy
     Dosage: UNK
     Route: 064
  88. ORENCIA [Suspect]
     Active Substance: ABATACEPT
     Dosage: UNK
     Route: 064
  89. PHTHALYLSULFATHIAZOLE [Suspect]
     Active Substance: PHTHALYLSULFATHIAZOLE
     Indication: Foetal exposure during pregnancy
     Dosage: UNK
     Route: 064
  90. PHTHALYLSULFATHIAZOLE [Suspect]
     Active Substance: PHTHALYLSULFATHIAZOLE
     Dosage: UNK (MATERNAL EXPOSURE DURING PREGNANCY: 400 MG)
     Route: 064
  91. PHTHALYLSULFATHIAZOLE [Suspect]
     Active Substance: PHTHALYLSULFATHIAZOLE
     Dosage: UNK
     Route: 064
  92. PHTHALYLSULFATHIAZOLE [Suspect]
     Active Substance: PHTHALYLSULFATHIAZOLE
     Dosage: UNK
     Route: 064
  93. PHTHALYLSULFATHIAZOLE [Suspect]
     Active Substance: PHTHALYLSULFATHIAZOLE
     Dosage: UNK
     Route: 064
  94. PREDNISONE [Suspect]
     Active Substance: PREDNISONE
     Indication: Foetal exposure during pregnancy
     Dosage: UNK (MATERNAL EXPOSURE DURING PREGNANCY: 25 MG)
     Route: 064
  95. PREDNISONE [Suspect]
     Active Substance: PREDNISONE
     Dosage: UNK (MATERNAL EXPOSURE DURING PREGNANCY: 40 MG)
     Route: 064
  96. PREDNISONE [Suspect]
     Active Substance: PREDNISONE
     Dosage: UNK
     Route: 064
  97. PREDNISONE [Suspect]
     Active Substance: PREDNISONE
     Dosage: UNK
     Route: 064
  98. REMICADE [Suspect]
     Active Substance: INFLIXIMAB
     Indication: Foetal exposure during pregnancy
     Dosage: UNK (MATERNAL EXPOSURE DURING PREGNANCY: 300 MG)
     Route: 064
  99. REMICADE [Suspect]
     Active Substance: INFLIXIMAB
     Dosage: UNK (MATERNAL EXPOSURE DURING PREGNANCY: 400 MG)
     Route: 064
  100. REMICADE [Suspect]
     Active Substance: INFLIXIMAB
     Dosage: UNK (MATERNAL EXPOSURE DURING PREGNANCY: 500 MG)
     Route: 064
  101. REMICADE [Suspect]
     Active Substance: INFLIXIMAB
     Dosage: UNK
     Route: 064
  102. REMICADE [Suspect]
     Active Substance: INFLIXIMAB
     Dosage: UNK
     Route: 064
  103. REMICADE [Suspect]
     Active Substance: INFLIXIMAB
     Dosage: UNK
     Route: 064
  104. SIMPONI [Suspect]
     Active Substance: GOLIMUMAB
     Indication: Foetal exposure during pregnancy
     Dosage: UNK (SOLUTION SUBCUTANEOUS)
     Route: 064
  105. SIMPONI [Suspect]
     Active Substance: GOLIMUMAB
     Dosage: UNK (SOLUTION SUBCUTANEOUS)
     Route: 064
  106. SOLU-MEDROL [Suspect]
     Active Substance: METHYLPREDNISOLONE SODIUM SUCCINATE
     Indication: Foetal exposure during pregnancy
     Dosage: UNK
     Route: 064
  107. SULFASALAZINE [Suspect]
     Active Substance: SULFASALAZINE
     Indication: Foetal exposure during pregnancy
     Dosage: UNK (MATERNAL EXPOSURE DURING PREGNANCY: 1000 MG)
     Route: 064
  108. SULFASALAZINE [Suspect]
     Active Substance: SULFASALAZINE
     Dosage: UNK (MATERNAL EXPOSURE DURING PREGNANCY: 500 MG)
     Route: 064
  109. SULFASALAZINE [Suspect]
     Active Substance: SULFASALAZINE
     Dosage: UNK (MATERNAL EXPOSURE DURING PREGNANCY: 1000 MG, BID)
     Route: 064
  110. SULFASALAZINE [Suspect]
     Active Substance: SULFASALAZINE
     Dosage: UNK (MATERNAL EXPOSURE DURING PREGNANCY: 2 G, BID)
     Route: 064
  111. HYDROCORTISONE ACETATE [Suspect]
     Active Substance: HYDROCORTISONE ACETATE
     Indication: Foetal exposure during pregnancy
     Dosage: UNK
     Route: 065
  112. TOCILIZUMAB [Suspect]
     Active Substance: TOCILIZUMAB
     Indication: Foetal exposure during pregnancy
     Dosage: UNK
     Route: 064
  113. XELJANZ [Suspect]
     Active Substance: TOFACITINIB CITRATE
     Indication: Foetal exposure during pregnancy
     Dosage: UNK
     Route: 064
  114. XELJANZ [Suspect]
     Active Substance: TOFACITINIB CITRATE
     Dosage: UNK
     Route: 064
  115. OTEZLA [Suspect]
     Active Substance: APREMILAST
     Indication: Foetal exposure during pregnancy
     Dosage: UNK
     Route: 064
  116. CETIRIZINE HYDROCHLORIDE\PSEUDOEPHEDRINE HYDROCHLORIDE [Suspect]
     Active Substance: CETIRIZINE HYDROCHLORIDE\PSEUDOEPHEDRINE HYDROCHLORIDE
     Indication: Foetal exposure during pregnancy
     Dosage: UNK
     Route: 064
  117. STELARA [Suspect]
     Active Substance: USTEKINUMAB
     Indication: Foetal exposure during pregnancy
     Dosage: UNK (SOLUTION SUBCUTANEOUS)
     Route: 064
  118. METHYLPREDNISOLONE SODIUM SUCCINATE [Suspect]
     Active Substance: METHYLPREDNISOLONE SODIUM SUCCINATE
     Indication: Foetal exposure during pregnancy
     Dosage: UNK
     Route: 064
  119. APREMILAST [Suspect]
     Active Substance: APREMILAST
     Indication: Foetal exposure during pregnancy
     Dosage: UNK
     Route: 064
  120. ALENDRONIC ACID [Suspect]
     Active Substance: ALENDRONIC ACID
     Indication: Foetal exposure during pregnancy
     Dosage: UNK
     Route: 064
  121. ALENDRONIC ACID [Suspect]
     Active Substance: ALENDRONIC ACID
     Dosage: UNK
     Route: 064
  122. RITUXIMAB [Suspect]
     Active Substance: RITUXIMAB
     Indication: Foetal exposure during pregnancy
     Dosage: UNK
     Route: 064
  123. RITUXIMAB [Suspect]
     Active Substance: RITUXIMAB
     Dosage: UNK
     Route: 064
  124. RITUXIMAB [Suspect]
     Active Substance: RITUXIMAB
     Dosage: UNK
     Route: 064
  125. RITUXIMAB [Suspect]
     Active Substance: RITUXIMAB
     Dosage: UNK
     Route: 064
  126. CETIRIZINE HYDROCHLORIDE\PSEUDOEPHEDRINE HYDROCHLORIDE [Suspect]
     Active Substance: CETIRIZINE HYDROCHLORIDE\PSEUDOEPHEDRINE HYDROCHLORIDE
     Indication: Foetal exposure during pregnancy
     Dosage: UNK
     Route: 064
  127. ALENDRONATE SODIUM [Suspect]
     Active Substance: ALENDRONATE SODIUM
     Indication: Foetal exposure during pregnancy
     Dosage: UNK
     Route: 064
  128. INFLIXIMAB [Suspect]
     Active Substance: INFLIXIMAB
     Indication: Foetal exposure during pregnancy
     Dosage: UNK
     Route: 064
  129. CAFFEINE CITRATE [Concomitant]
     Active Substance: CAFFEINE CITRATE
     Indication: Foetal exposure during pregnancy
     Dosage: UNK
     Route: 064
  130. SULFASALAZINE [Concomitant]
     Active Substance: SULFASALAZINE
     Indication: Foetal exposure during pregnancy
     Dosage: UNK (MATERNAL EXPOSURE DURING PREGNANCY: 1 G  )
     Route: 064
  131. CODEINE [Concomitant]
     Active Substance: CODEINE
     Indication: Foetal exposure during pregnancy
     Dosage: UNK
     Route: 064
  132. IBUPROFEN [Concomitant]
     Active Substance: IBUPROFEN
     Indication: Foetal exposure during pregnancy
     Dosage: UNK
     Route: 064
  133. LISINOPRIL [Concomitant]
     Active Substance: LISINOPRIL
     Indication: Foetal exposure during pregnancy
     Dosage: UNK
     Route: 064
  134. VITAMIN D3 [Concomitant]
     Active Substance: CHOLECALCIFEROL
     Indication: Foetal exposure during pregnancy
     Dosage: UNK
     Route: 064
  135. VITAMIN D3 [Concomitant]
     Active Substance: CHOLECALCIFEROL
     Dosage: UNK
     Route: 064
  136. TOFACITINIB CITRATE [Concomitant]
     Active Substance: TOFACITINIB CITRATE
     Indication: Foetal exposure during pregnancy
     Dosage: UNK
     Route: 064
  137. DICLOFENAC POTASSIUM [Concomitant]
     Active Substance: DICLOFENAC POTASSIUM
     Indication: Foetal exposure during pregnancy
     Dosage: UNK
     Route: 065

REACTIONS (1)
  - Death neonatal [Fatal]
